FAERS Safety Report 4601222-7 (Version None)
Quarter: 2005Q1

REPORT INFORMATION
  Report Type: 
  Country: None (occurrence: None)
  Receive Date: 20050308
  Receipt Date: 20050101
  Transmission Date: 20050727
  Serious: Yes (Death, Other)
  Sender: FDA-Public Use
  Company Number: US-JNJFOC-20050301280

PATIENT
  Age: 19 Year
  Sex: Female

DRUGS (1)
  1. FENTANYL [Suspect]
     Indication: INTENTIONAL MISUSE
     Route: 049
     Dates: start: 20041107, end: 20041107

REACTIONS (2)
  - DRUG ABUSER [None]
  - OVERDOSE [None]
